FAERS Safety Report 4523578-6 (Version None)
Quarter: 2004Q4

REPORT INFORMATION
  Report Type: 
  Country: None (occurrence: None)
  Receive Date: 20041117
  Receipt Date: 20040728
  Transmission Date: 20050328
  Serious: Yes (Hospitalization)
  Sender: FDA-Public Use
  Company Number: DE-JNJFOC-20040708159

PATIENT
  Age: 84 Year
  Sex: Female

DRUGS (11)
  1. LEVOFLOXACIN [Suspect]
     Indication: PNEUMONIA
     Dosage: INTRAVENOUS
     Route: 042
     Dates: start: 20040120, end: 20040122
  2. LEVOFLOXACIN [Suspect]
     Indication: PNEUMONIA
     Dosage: ORAL
     Route: 048
     Dates: start: 20040123, end: 20040124
  3. MICRO K (POTASSIUM CHLORIDE) [Concomitant]
  4. AMBIEN [Concomitant]
  5. PREVENTIL (SALBUTAMOL) [Concomitant]
  6. ATROVENT [Concomitant]
  7. TYLENOL [Concomitant]
  8. NORVASC [Concomitant]
  9. PEPCID [Concomitant]
  10. MAALOX (MAALOX) [Concomitant]
  11. TUSSIONEX (TUSSIONEX ^LABQUIFAR^) [Concomitant]

REACTIONS (1)
  - ASTHMA [None]
